FAERS Safety Report 4354100-5 (Version None)
Quarter: 2004Q2

REPORT INFORMATION
  Report Type: 
  Country: None (occurrence: None)
  Receive Date: 20040505
  Receipt Date: 20040505
  Transmission Date: 20050107
  Serious: Yes (Other)
  Sender: FDA-Public Use
  Company Number: None

PATIENT
  Sex: Female

DRUGS (2)
  1. BUPROPRION 75 MG BID [Suspect]
     Indication: DEPRESSION
     Dosage: PO
     Route: 048
     Dates: start: 20030401, end: 20031101
  2. FLUOXETINE [Concomitant]

REACTIONS (2)
  - MENOPAUSE [None]
  - PHARMACEUTICAL PRODUCT COMPLAINT [None]
